FAERS Safety Report 5363161-6 (Version None)
Quarter: 2007Q2

REPORT INFORMATION
  Report Type: 
  Country: None (occurrence: None)
  Receive Date: 20070514
  Receipt Date: 20070514
  Transmission Date: 20071010
  Serious: Yes (Hospitalization)
  Sender: FDA-Public Use
  Company Number: None

PATIENT
  Age: 63 Year
  Sex: Female
  Weight: 71.6683 kg

DRUGS (3)
  1. ABRAXANE [Suspect]
     Indication: BREAST CANCER
     Dosage: 260MG/M2/Q 21 DAYS/IV
     Route: 042
     Dates: start: 20070202, end: 20070218
  2. XELODA [Suspect]
     Indication: BREAST CANCER
     Dosage: 825MG/M2/BID14DAYS/ORAL
     Route: 048
     Dates: start: 20070223, end: 20070308
  3. SYNTHROID [Concomitant]

REACTIONS (9)
  - ABDOMINAL DISTENSION [None]
  - ABDOMINAL PAIN [None]
  - HYPOTHYROIDISM [None]
  - ILEUS [None]
  - PERFORMANCE STATUS DECREASED [None]
  - PNEUMONIA [None]
  - PYREXIA [None]
  - VOMITING [None]
  - WAIST CIRCUMFERENCE INCREASED [None]
